FAERS Safety Report 8232075-6 (Version None)
Quarter: 2012Q1

REPORT INFORMATION
  Report Type: 
  Country: None (occurrence: None)
  Receive Date: 20120323
  Receipt Date: 20120314
  Transmission Date: 20120608
  Serious: Yes (Hospitalization)
  Sender: FDA-Public Use
  Company Number: HU-ASTRAZENECA-2012SE17625

PATIENT
  Age: 53 Year
  Sex: Female

DRUGS (11)
  1. LITHIUM CARBONATE [Suspect]
     Indication: SUICIDE ATTEMPT
     Route: 065
  2. QUETIAPINE [Suspect]
     Route: 048
  3. ESCITALOPRAM [Suspect]
     Route: 065
  4. AMILORIDE HYDROCHLORIDE [Concomitant]
  5. HYDROCHLOROTHIAZIDE [Concomitant]
  6. CLONAZEPAM [Concomitant]
     Dosage: 0.5-0.5-3 MG
  7. ASPIRIN [Concomitant]
  8. CINOLAZEPAM [Concomitant]
  9. KETOCONAZOLE [Concomitant]
     Indication: INTERTRIGO
  10. LEVOTHYROXINE SODIUM [Concomitant]
  11. CARBAMAZEPINE [Suspect]
     Route: 065

REACTIONS (1)
  - SINUS ARRHYTHMIA [None]
